FAERS Safety Report 10430375 (Version 2)
Quarter: 2014Q3

REPORT INFORMATION
  Report Type: Spontaneous
  Country: US (occurrence: US)
  Receive Date: 20140904
  Receipt Date: 20140912
  Transmission Date: 20150326
  Serious: Yes (Other)
  Sender: FDA-Public Use
  Company Number: US-PFIZER INC-2014242270

PATIENT
  Sex: Female

DRUGS (1)
  1. NEURONTIN [Suspect]
     Active Substance: GABAPENTIN
     Dosage: UNK
     Dates: start: 2011

REACTIONS (5)
  - Autoimmune thyroiditis [Unknown]
  - Hormone level abnormal [Unknown]
  - Eye disorder [Unknown]
  - Basedow^s disease [Unknown]
  - Eyelid retraction [Unknown]

NARRATIVE: CASE EVENT DATE: 2014
